FAERS Safety Report 24045311 (Version 5)
Quarter: 2025Q1

REPORT INFORMATION
  Report Type: Spontaneous
  Country: US (occurrence: US)
  Receive Date: 20240703
  Receipt Date: 20250324
  Transmission Date: 20250409
  Serious: Yes (Disabling, Other)
  Sender: AMGEN
  Company Number: US-AMGEN-USASP2024127652

PATIENT
  Age: 54 Year
  Sex: Male

DRUGS (28)
  1. TEPEZZA [Suspect]
     Active Substance: TEPROTUMUMAB-TRBW
     Indication: Graves^ disease
     Dosage: 760 MILLIGRAM, Q3WK (FIRST DOSE)
     Route: 042
     Dates: start: 20200408
  2. TEPEZZA [Suspect]
     Active Substance: TEPROTUMUMAB-TRBW
     Indication: Endocrine ophthalmopathy
     Dosage: 1520 MILLIGRAM, Q3WK (SECOND DOSE)
     Route: 040
     Dates: start: 20200429
  3. TEPEZZA [Suspect]
     Active Substance: TEPROTUMUMAB-TRBW
     Dosage: 1520 MILLIGRAM, Q3WK (THIRD DOSE)
     Route: 042
     Dates: start: 20200520, end: 202009
  4. TEPEZZA [Suspect]
     Active Substance: TEPROTUMUMAB-TRBW
     Dosage: 1520 MILLIGRAM, Q3WK (FOURTH DOSE)
     Route: 042
     Dates: start: 20200610, end: 202009
  5. TEPEZZA [Suspect]
     Active Substance: TEPROTUMUMAB-TRBW
     Dosage: 1517 MILLIGRAM, Q3WK (FIFTH DOSE)
     Route: 042
     Dates: start: 20200701, end: 202009
  6. TEPEZZA [Suspect]
     Active Substance: TEPROTUMUMAB-TRBW
     Dosage: 1532 MILLIGRAM, Q3WK (SIXTH DOSE)
     Route: 042
     Dates: start: 20200722, end: 202009
  7. TEPEZZA [Suspect]
     Active Substance: TEPROTUMUMAB-TRBW
     Dosage: 1550 MILLIGRAM, Q3WK (SEVENTH DOSE)
     Route: 042
     Dates: start: 20200813, end: 202009
  8. TEPEZZA [Suspect]
     Active Substance: TEPROTUMUMAB-TRBW
     Dosage: 1509 MILLIGRAM, Q3WK (EIGHTH DOSE)
     Route: 042
     Dates: start: 20200904, end: 202009
  9. GLIPIZIDE [Concomitant]
     Active Substance: GLIPIZIDE
     Dosage: 2.5 MILLIGRAM, QD (1 TABLET WITH BREAKFAST)
     Route: 048
  10. GLIPIZIDE [Concomitant]
     Active Substance: GLIPIZIDE
     Route: 048
  11. GLIPIZIDE [Concomitant]
     Active Substance: GLIPIZIDE
     Dosage: 2.5 MILLIGRAM, BID (1 TABLET WITH FOOD)
     Route: 048
  12. METHIMAZOLE [Concomitant]
     Active Substance: METHIMAZOLE
     Dosage: 5 MILLIGRAM, QD  (1/2 TABLET WITH FOOD)
     Route: 048
  13. METHIMAZOLE [Concomitant]
     Active Substance: METHIMAZOLE
     Dosage: 10 MILLIGRAM, QD ( 1 TABLET WITH FOOD)
     Route: 048
  14. METHIMAZOLE [Concomitant]
     Active Substance: METHIMAZOLE
     Dosage: 10 MILLIGRAM, QD ( 1.5 TABLET WITH FOOD)
     Route: 048
  15. METFORMIN [Concomitant]
     Active Substance: METFORMIN HYDROCHLORIDE
     Dosage: 500 MILLIGRAM, QD (1 TABLET WITH A MEAL )
     Route: 048
  16. TRIAMCINOLONE [Concomitant]
     Active Substance: TRIAMCINOLONE
     Route: 065
  17. CIPROFLOXACIN [Concomitant]
     Active Substance: CIPROFLOXACIN
     Route: 065
  18. PHENAZOPYRIDINE [Concomitant]
     Active Substance: PHENAZOPYRIDINE
     Route: 065
  19. IBUPROFEN [Concomitant]
     Active Substance: IBUPROFEN
     Route: 065
  20. TAMSULOSIN [Concomitant]
     Active Substance: TAMSULOSIN
     Route: 065
  21. JANSSEN COVID-19 VACCINE [Concomitant]
     Active Substance: AD26.COV2.S
     Route: 065
  22. ROSUVASTATIN [Concomitant]
     Active Substance: ROSUVASTATIN
     Route: 065
  23. FAMCICLOVIR [Concomitant]
     Active Substance: FAMCICLOVIR
     Route: 065
  24. AMOXICILLIN [Concomitant]
     Active Substance: AMOXICILLIN
     Route: 065
  25. METHYLPREDNISOLONE [Concomitant]
     Active Substance: METHYLPREDNISOLONE
     Route: 065
  26. BENZONATATE [Concomitant]
     Active Substance: BENZONATATE
     Route: 065
  27. FLUTICASONE [Concomitant]
     Active Substance: FLUTICASONE
     Route: 065
  28. AMOXICILLIN\CLAVULANATE POTASSIUM [Concomitant]
     Active Substance: AMOXICILLIN\CLAVULANATE POTASSIUM
     Route: 065

REACTIONS (37)
  - Deafness permanent [Not Recovered/Not Resolved]
  - Endocrine ophthalmopathy [Unknown]
  - Graves^ disease [Unknown]
  - Physical disability [Unknown]
  - Type 2 diabetes mellitus [Unknown]
  - Depressed level of consciousness [Unknown]
  - Emotional distress [Unknown]
  - Anxiety [Unknown]
  - Anhedonia [Unknown]
  - Discomfort [Unknown]
  - Pain [Unknown]
  - Injury [Unknown]
  - Product use complaint [Unknown]
  - Thyroid mass [Unknown]
  - Stress [Unknown]
  - Weight increased [Unknown]
  - Blood albumin increased [Unknown]
  - Low density lipoprotein increased [Unknown]
  - Blood thyroid stimulating hormone decreased [Unknown]
  - Muscle disorder [Unknown]
  - Strabismus [Unknown]
  - Tinnitus [Not Recovered/Not Resolved]
  - Fatigue [Unknown]
  - Blood creatinine increased [Unknown]
  - Glomerular filtration rate decreased [Unknown]
  - Fructosamine increased [Unknown]
  - White blood cell count decreased [Unknown]
  - Anti-thyroid antibody positive [Unknown]
  - Blood cholesterol decreased [Unknown]
  - Blood pressure systolic decreased [Unknown]
  - Blood pressure systolic increased [Unknown]
  - High density lipoprotein decreased [Unknown]
  - Type V hyperlipidaemia [Unknown]
  - Headache [Recovered/Resolved]
  - Skin hyperpigmentation [Unknown]
  - Diarrhoea [Unknown]
  - Drug ineffective [Unknown]

NARRATIVE: CASE EVENT DATE: 20200401
